FAERS Safety Report 6570859-0 (Version None)
Quarter: 2010Q1

REPORT INFORMATION
  Report Type: 
  Country: None (occurrence: None)
  Receive Date: 20100203
  Receipt Date: 20100203
  Transmission Date: 20100710
  Serious: Yes (Life-Threatening, Hospitalization)
  Sender: FDA-Public Use
  Company Number: None

PATIENT
  Age: 52 Year
  Sex: Male
  Weight: 100 kg

DRUGS (4)
  1. PROCHLORPERAZINE [Suspect]
     Indication: PROCEDURAL NAUSEA
     Dosage: 10 MG Q6H IV
     Route: 042
     Dates: start: 20100112, end: 20100118
  2. BUPIVACAINE HCL [Concomitant]
  3. PROPROFOL [Concomitant]
  4. HALDOL PRN [Concomitant]

REACTIONS (2)
  - DRUG TOXICITY [None]
  - NEUROLEPTIC MALIGNANT SYNDROME [None]
